FAERS Safety Report 4332677-3 (Version None)
Quarter: 2004Q1

REPORT INFORMATION
  Report Type: 
  Country: None (occurrence: None)
  Receive Date: 20040330
  Receipt Date: 20040322
  Transmission Date: 20041129
  Serious: Yes (Hospitalization)
  Sender: FDA-Public Use
  Company Number: 2004198987US

PATIENT
  Sex: Female
  Weight: 49.9 kg

DRUGS (3)
  1. DEPO-PROVERA [Suspect]
     Indication: CONTRACEPTION
     Dosage: 1ST INJECTION/ EVERY 3 MONTHS, INTRAMUSCULAR; LAST INJECTION/ EVERY 3 MONTHS,
     Route: 030
     Dates: start: 20020701, end: 20020701
  2. DEPO-PROVERA [Suspect]
     Indication: CONTRACEPTION
     Dosage: 1ST INJECTION/ EVERY 3 MONTHS, INTRAMUSCULAR; LAST INJECTION/ EVERY 3 MONTHS,
     Route: 030
     Dates: start: 20030601, end: 20030601
  3. LUPRON [Concomitant]

REACTIONS (2)
  - ABDOMINAL PAIN [None]
  - MIGRAINE [None]
